FAERS Safety Report 25342384 (Version 2)
Quarter: 2025Q3

REPORT INFORMATION
  Report Type: Spontaneous
  Country: US (occurrence: US)
  Receive Date: 20250521
  Receipt Date: 20250820
  Transmission Date: 20251021
  Serious: No
  Sender: CATALYST PHARMA
  Company Number: US-CATALYST PHARMACEUTICALS-US-CATA-25-00200

PATIENT
  Age: 7 Year
  Sex: Male
  Weight: 18.399 kg

DRUGS (8)
  1. AGAMREE [Suspect]
     Active Substance: VAMOROLONE
     Indication: Duchenne muscular dystrophy
     Dosage: 1.0 ML DAILY
     Route: 048
     Dates: start: 20240513, end: 20241217
  2. AGAMREE [Suspect]
     Active Substance: VAMOROLONE
     Dosage: 1.8 ML DAILY
     Route: 048
     Dates: start: 20241217
  3. CHILDREN CLARITIN ALLERGY [Concomitant]
     Active Substance: LORATADINE
     Indication: Hypersensitivity
     Route: 048
  4. CHILDREN CLARITIN ALLERGY [Concomitant]
     Active Substance: LORATADINE
     Indication: Rhinitis
  5. CHILDRENS TYLENOL [Concomitant]
     Active Substance: ACETAMINOPHEN
     Indication: Pain
     Route: 048
  6. CHILDRENS TYLENOL [Concomitant]
     Active Substance: ACETAMINOPHEN
     Indication: Pyrexia
  7. ADVIL [Concomitant]
     Active Substance: IBUPROFEN
     Indication: Pain
     Route: 048
  8. ADVIL [Concomitant]
     Active Substance: IBUPROFEN
     Indication: Pyrexia

REACTIONS (1)
  - Influenza [Not Recovered/Not Resolved]

NARRATIVE: CASE EVENT DATE: 20250202
